FAERS Safety Report 8824607 (Version 6)
Quarter: 2013Q4

REPORT INFORMATION
  Report Type: Report from Study
  Country: US (occurrence: US)
  Receive Date: 20121004
  Receipt Date: 20131226
  Transmission Date: 20140711
  Serious: Yes (Hospitalization)
  Sender: FDA-Public Use
  Company Number: US-JNJFOC-20120903701

PATIENT
  Age: 68 Year
  Sex: Female
  Weight: 98 kg

DRUGS (13)
  1. GOLIMUMAB [Suspect]
     Indication: RHEUMATOID ARTHRITIS
     Route: 042
     Dates: start: 20120716, end: 20120716
  2. GOLIMUMAB [Suspect]
     Indication: RHEUMATOID ARTHRITIS
     Route: 042
     Dates: start: 20111228
  3. GOLIMUMAB [Suspect]
     Indication: RHEUMATOID ARTHRITIS
     Route: 042
     Dates: start: 20120925
  4. METHOTREXATE [Concomitant]
     Indication: RHEUMATOID ARTHRITIS
     Dates: start: 2004
  5. LEXAPRO [Concomitant]
     Indication: DEPRESSION
     Route: 048
     Dates: start: 2010
  6. PREDNISONE [Concomitant]
     Indication: RHEUMATOID ARTHRITIS
     Route: 048
     Dates: start: 2004
  7. VESICARE [Concomitant]
     Indication: MICTURITION URGENCY
     Route: 048
     Dates: start: 201101
  8. DEXILANT [Concomitant]
     Indication: GASTROOESOPHAGEAL REFLUX DISEASE
     Route: 048
     Dates: start: 2006
  9. TURMERIC [Concomitant]
     Indication: NUTRITIONAL SUPPLEMENTATION
     Route: 048
     Dates: start: 2010
  10. ATELVIA [Concomitant]
     Indication: OSTEOPOROSIS
     Route: 048
     Dates: start: 2006
  11. AVINZA [Concomitant]
  12. FLEXERIL [Concomitant]
  13. HYZAAR [Concomitant]
     Dosage: 100/25

REACTIONS (1)
  - Urinary tract infection [Recovered/Resolved]
